FAERS Safety Report 6347283-9 (Version None)
Quarter: 2009Q3

REPORT INFORMATION
  Report Type: 
  Country: None (occurrence: None)
  Receive Date: 20090910
  Receipt Date: 20090902
  Transmission Date: 20100115
  Serious: Yes (Disabling)
  Sender: FDA-Public Use
  Company Number: AU-BRISTOL-MYERS SQUIBB COMPANY-14771778

PATIENT
  Age: 76 Year
  Sex: Male

DRUGS (10)
  1. CARBIDOPA + LEVODOPA [Suspect]
     Indication: PARKINSON'S DISEASE
     Dosage: 200/50 MG OF CONTROLLED RELEASE
     Route: 048
  2. MODOPAR [Suspect]
     Indication: PARKINSON'S DISEASE
     Route: 048
  3. ENTACAPONE [Suspect]
     Indication: PARKINSON'S DISEASE
     Route: 048
  4. CHOLECALCIFEROL [Concomitant]
  5. DOMPERIDONE [Concomitant]
  6. FLUDROCORTISONE [Concomitant]
  7. GLICLAZIDE [Concomitant]
  8. QUETIAPINE FUMARATE [Concomitant]
  9. VENLAFAXINE HCL [Concomitant]
  10. ZOPICLONE [Concomitant]

REACTIONS (4)
  - DEPRESSION [None]
  - MUSCULAR WEAKNESS [None]
  - NEUROPATHY PERIPHERAL [None]
  - VITAMIN B6 DEFICIENCY [None]
